FAERS Safety Report 23568380 (Version 4)
Quarter: 2024Q3

REPORT INFORMATION
  Report Type: Report from Study
  Country: JP (occurrence: JP)
  Receive Date: 20240227
  Receipt Date: 20240912
  Transmission Date: 20241017
  Serious: No
  Sender: GLAXOSMITHKLINE
  Company Number: JP-GLAXOSMITHKLINE-JP2019JPN170072

PATIENT

DRUGS (25)
  1. BELIMUMAB [Suspect]
     Active Substance: BELIMUMAB
     Indication: Systemic lupus erythematosus
     Dosage: 10 MG/KG, EVERY 2 WEEKS
     Route: 041
     Dates: start: 20190104, end: 20190201
  2. BELIMUMAB [Suspect]
     Active Substance: BELIMUMAB
     Dosage: 10 MG/KG, EVERY 4 WEEKS
     Route: 041
     Dates: start: 20190301, end: 20190329
  3. PREDONINE [Concomitant]
     Active Substance: PREDNISOLONE
     Indication: Systemic lupus erythematosus
     Dosage: 5 MG, 1D
     Route: 048
     Dates: start: 20180713
  4. PREDNISOLONE [Concomitant]
     Active Substance: PREDNISOLONE
     Indication: Systemic lupus erythematosus
     Dosage: 4 MG, 1D
     Route: 048
     Dates: start: 20180713
  5. ENALAPRIL [Concomitant]
     Active Substance: ENALAPRIL
     Dosage: UNK
  6. AMLODIPINE [Concomitant]
     Active Substance: AMLODIPINE BESYLATE
     Dosage: UNK
  7. GLUTAMINE\SODIUM GUALENATE [Concomitant]
     Active Substance: GLUTAMINE\SODIUM GUALENATE
     Indication: Prophylaxis
     Dosage: UNK
  8. PROGRAF [Concomitant]
     Active Substance: TACROLIMUS
     Indication: Systemic lupus erythematosus
     Dosage: UNK
  9. MENATETRENONE [Concomitant]
     Active Substance: MENATETRENONE
     Dosage: UNK
  10. Lochol [Concomitant]
     Indication: Hypercholesterolaemia
     Dosage: UNK
  11. MAGNESIUM OXIDE [Concomitant]
     Active Substance: MAGNESIUM OXIDE
     Dosage: UNK
  12. PL [Concomitant]
     Active Substance: ACETAMINOPHEN\CAFFEINE\PROMETHAZINE\SALICYLAMIDE
     Indication: Prophylaxis
     Dosage: UNK
  13. ELDECALCITOL [Concomitant]
     Active Substance: ELDECALCITOL
     Dosage: UNK
  14. FLURBIPROFEN [Concomitant]
     Active Substance: FLURBIPROFEN
     Dosage: UNK
  15. HYALURONATE SODIUM [Concomitant]
     Active Substance: HYALURONATE SODIUM
     Indication: Dry eye
     Dosage: UNK
  16. BROMFENAC NA [Concomitant]
     Indication: Retinal pigment epitheliopathy
     Dosage: UNK
     Dates: start: 20190327
  17. BROMFENAC NA [Concomitant]
     Indication: Conjunctivitis
  18. BROMFENAC NA [Concomitant]
     Indication: Macular oedema
  19. GATIFLOXACIN [Concomitant]
     Active Substance: GATIFLOXACIN
     Indication: Retinal pigment epitheliopathy
     Dosage: UNK
  20. GATIFLOXACIN [Concomitant]
     Active Substance: GATIFLOXACIN
     Indication: Conjunctivitis
  21. GATIFLOXACIN [Concomitant]
     Active Substance: GATIFLOXACIN
     Indication: Macular oedema
  22. DENOSUMAB [Concomitant]
     Active Substance: DENOSUMAB
     Dosage: UNK
  23. LUCENTIS [Concomitant]
     Active Substance: RANIBIZUMAB
     Dosage: UNK
     Dates: start: 20190305, end: 20190305
  24. LUCENTIS [Concomitant]
     Active Substance: RANIBIZUMAB
     Dosage: UNK
     Dates: start: 20190424, end: 20190424
  25. LUCENTIS [Concomitant]
     Active Substance: RANIBIZUMAB
     Dosage: UNK
     Dates: start: 20190528, end: 20190528

REACTIONS (4)
  - Insomnia [Recovered/Resolved]
  - Depression [Recovered/Resolved]
  - Headache [Recovered/Resolved]
  - Circumstance or information capable of leading to medication error [Unknown]

NARRATIVE: CASE EVENT DATE: 20190301
